FAERS Safety Report 22097685 (Version 8)
Quarter: 2023Q2

REPORT INFORMATION
  Report Type: Spontaneous
  Country: US (occurrence: US)
  Receive Date: 20230315
  Receipt Date: 20230519
  Transmission Date: 20230721
  Serious: Yes (Other)
  Sender: FDA-Public Use
  Company Number: US-PFIZER INC-PV202300043855

PATIENT
  Age: 63 Year
  Sex: Female

DRUGS (2)
  1. IBRANCE [Suspect]
     Active Substance: PALBOCICLIB
     Dosage: 125 MG
  2. IBRANCE [Suspect]
     Active Substance: PALBOCICLIB
     Dosage: 100 MG, ONCE A DAY
     Dates: start: 202304

REACTIONS (27)
  - Myocardial infarction [Unknown]
  - Chest discomfort [Unknown]
  - Gait disturbance [Unknown]
  - Blood pressure decreased [Unknown]
  - Lip oedema [Unknown]
  - Stomatitis [Unknown]
  - Abdominal discomfort [Unknown]
  - Nausea [Unknown]
  - Fatigue [Not Recovered/Not Resolved]
  - Sinus pain [Unknown]
  - Epistaxis [Recovered/Resolved]
  - Dry eye [Not Recovered/Not Resolved]
  - Abdominal pain upper [Recovered/Resolved]
  - Gastrooesophageal reflux disease [Recovered/Resolved]
  - Eye irritation [Unknown]
  - Nasal dryness [Unknown]
  - Headache [Unknown]
  - White blood cell count decreased [Unknown]
  - Chest pain [Not Recovered/Not Resolved]
  - Dry skin [Not Recovered/Not Resolved]
  - Balance disorder [Unknown]
  - Blood test abnormal [Unknown]
  - Lip dry [Unknown]
  - Pruritus [Unknown]
  - Hypotension [Unknown]
  - Somnolence [Unknown]
  - Neoplasm progression [Unknown]

NARRATIVE: CASE EVENT DATE: 20230401
